FAERS Safety Report 6207810-9 (Version None)
Quarter: 2009Q2

REPORT INFORMATION
  Report Type: 
  Country: None (occurrence: None)
  Receive Date: 20090528
  Receipt Date: 20090522
  Transmission Date: 20091009
  Serious: Yes (Other)
  Sender: FDA-Public Use
  Company Number: US-ELI_LILLY_AND_COMPANY-US200903006789

PATIENT
  Age: 88 Year
  Sex: Female

DRUGS (5)
  1. FORTEO [Suspect]
     Indication: OSTEOPOROSIS
     Dosage: 20 UG, UNK
     Route: 058
     Dates: start: 20070801, end: 20090326
  2. LIPITOR [Concomitant]
  3. NEURONTIN [Concomitant]
  4. DILAUDID [Concomitant]
  5. KEPPRA [Concomitant]
     Dates: start: 20090201

REACTIONS (1)
  - PARTIAL SEIZURES [None]
